FAERS Safety Report 23858881 (Version 6)
Quarter: 2025Q2

REPORT INFORMATION
  Report Type: Spontaneous
  Country: IN (occurrence: IN)
  Receive Date: 20240515
  Receipt Date: 20250627
  Transmission Date: 20250717
  Serious: Yes (Other)
  Sender: SANDOZ
  Company Number: IN-002147023-NVSC2024IN100479

PATIENT
  Age: 38 Year
  Sex: Male

DRUGS (7)
  1. MYFORTIC [Suspect]
     Active Substance: MYCOPHENOLATE SODIUM
     Dosage: 360 MG, TID
     Route: 048
  2. MYFORTIC [Suspect]
     Active Substance: MYCOPHENOLATE SODIUM
     Route: 048
  3. MYFORTIC [Suspect]
     Active Substance: MYCOPHENOLATE SODIUM
     Indication: Renal transplant
     Dosage: 360 MG, BID
     Route: 048
     Dates: start: 20230420
  4. TACROLIMUS [Suspect]
     Active Substance: TACROLIMUS
     Dosage: 1.5 MG, BID
     Route: 048
  5. TACROLIMUS [Suspect]
     Active Substance: TACROLIMUS
     Route: 048
  6. TACROLIMUS [Suspect]
     Active Substance: TACROLIMUS
     Route: 048
  7. TACROLIMUS [Suspect]
     Active Substance: TACROLIMUS
     Indication: Renal transplant
     Dosage: 2 MG, BID
     Route: 048
     Dates: start: 20230420

REACTIONS (12)
  - Kidney transplant rejection [Unknown]
  - White blood cell count abnormal [Unknown]
  - IgA nephropathy [Unknown]
  - Myocardial ischaemia [Unknown]
  - Thrombotic microangiopathy [Unknown]
  - Blood urea abnormal [Unknown]
  - Blood calcium abnormal [Unknown]
  - Drug level decreased [Unknown]
  - Blood creatinine abnormal [Unknown]
  - Blood glucose abnormal [Unknown]
  - Blood bilirubin abnormal [Unknown]
  - Off label use [Unknown]

NARRATIVE: CASE EVENT DATE: 20240507
